FAERS Safety Report 7272273-1 (Version None)
Quarter: 2010Q4

REPORT INFORMATION
  Report Type: 
  Country: None (occurrence: None)
  Receive Date: 20101213
  Receipt Date: 20100415
  Transmission Date: 20110411
  Serious: Yes (Other)
  Sender: FDA-Public Use
  Company Number: JHP201000139

PATIENT
  Age: 26 Year
  Sex: Female

DRUGS (2)
  1. PITOCIN [Suspect]
     Indication: LABOUR INDUCTION
     Dosage: UP TO 20 U IN 4 HOURS, IV DRIP
     Route: 041
     Dates: start: 20100301, end: 20100301
  2. SPINAL ANESTHESIA [Concomitant]

REACTIONS (1)
  - GRAND MAL CONVULSION [None]
